FAERS Safety Report 5150786-6 (Version None)
Quarter: 2006Q4

REPORT INFORMATION
  Report Type: 
  Country: None (occurrence: None)
  Receive Date: 20061108
  Receipt Date: 20061026
  Transmission Date: 20070319
  Serious: Yes (Life-Threatening)
  Sender: FDA-Public Use
  Company Number: 231889

PATIENT
  Age: 68 Year
  Sex: Female
  Weight: 57 kg

DRUGS (5)
  1. MABTHERA (RITUXIMAB) CONC FOR SOLUTION FOR INFUSION [Suspect]
     Indication: LEUKAEMIA
     Dosage: 500 MG, INTRAVENOUS
     Route: 042
     Dates: start: 20060721, end: 20060905
  2. VINCRISTINE [Suspect]
     Indication: LEUKAEMIA
     Dosage: 0.4 MG, INTRAVENOUS
     Route: 042
     Dates: start: 20060721, end: 20060902
  3. DOXORUBICIN HCL [Suspect]
     Indication: LEUKAEMIA
     Dosage: 14.4 MG, INTRAVENOUS
     Route: 042
     Dates: start: 20060721, end: 20060902
  4. DECTANCYL(DEXAMETHASONE ACETATE) [Suspect]
     Indication: LEUKAEMIA
     Dosage: 40 MG, PERINEURAL
     Route: 053
     Dates: start: 20060721, end: 20061006
  5. ARANESP [Suspect]
     Indication: ANAEMIA
     Dosage: 500 AUG, SUBCUTANEOUS
     Route: 058
     Dates: start: 20060725, end: 20060905

REACTIONS (3)
  - ANAEMIA [None]
  - PHLEBITIS [None]
  - PLATELET COUNT DECREASED [None]
